FAERS Safety Report 9301374 (Version 2)
Quarter: 2013Q3

REPORT INFORMATION
  Report Type: Spontaneous
  Country: TR (occurrence: TR)
  Receive Date: 20130521
  Receipt Date: 20130902
  Transmission Date: 20140515
  Serious: Yes (Other)
  Sender: FDA-Public Use
  Company Number: TR-AMGEN-TURSP2013015295

PATIENT
  Age: 48 Year
  Sex: Female

DRUGS (5)
  1. ENBREL [Suspect]
     Indication: RHEUMATOID ARTHRITIS
     Dosage: 50 MG, WEEKLY
     Route: 058
     Dates: start: 20120808, end: 201307
  2. ISONIAZID [Suspect]
     Indication: PRODUCT USED FOR UNKNOWN INDICATION
     Dosage: 3 TABLETS, 1X/DAY
     Route: 048
     Dates: end: 20130212
  3. PREDNOL                            /00049601/ [Concomitant]
     Indication: RHEUMATOID ARTHRITIS
     Dosage: 6 MG, 1X/DAY
     Route: 048
  4. PREDNOL                            /00049601/ [Concomitant]
     Dosage: 1 MG, 1X/DAY
     Route: 048
  5. FOLBIOL [Concomitant]
     Dosage: UNK, WEEKLY
     Route: 048

REACTIONS (12)
  - Fall [Recovered/Resolved with Sequelae]
  - Drug ineffective [Not Recovered/Not Resolved]
  - Bone pain [Not Recovered/Not Resolved]
  - Fatigue [Not Recovered/Not Resolved]
  - Arthralgia [Not Recovered/Not Resolved]
  - Joint swelling [Not Recovered/Not Resolved]
  - Weight increased [Recovered/Resolved]
  - Gait disturbance [Not Recovered/Not Resolved]
  - Xerophthalmia [Unknown]
  - Vision blurred [Not Recovered/Not Resolved]
  - Sensory disturbance [Not Recovered/Not Resolved]
  - Generalised oedema [Recovered/Resolved]
